FAERS Safety Report 9442352 (Version 1)
Quarter: 2013Q3

REPORT INFORMATION
  Report Type: Spontaneous
  Country: US (occurrence: US)
  Receive Date: 20130806
  Receipt Date: 20130806
  Transmission Date: 20140515
  Serious: No
  Sender: FDA-Public Use
  Company Number: US-GLAXOSMITHKLINE-A1009953A

PATIENT
  Age: 77 Year
  Sex: Male

DRUGS (6)
  1. ADVAIR [Suspect]
     Indication: RESPIRATORY TRACT INFECTION
     Dosage: 2PUFF TWICE PER DAY
     Route: 055
     Dates: start: 20130116
  2. ATENOLOL [Concomitant]
  3. LISINOPRIL [Concomitant]
  4. LEVOTHYROXINE [Concomitant]
  5. SIMVASTATIN [Concomitant]
  6. ASPIRIN [Concomitant]

REACTIONS (1)
  - Dysphonia [Not Recovered/Not Resolved]
